FAERS Safety Report 7990463-7 (Version None)
Quarter: 2011Q4

REPORT INFORMATION
  Report Type: 
  Country: None (occurrence: None)
  Receive Date: 20111219
  Receipt Date: 20110309
  Transmission Date: 20120403
  Serious: No
  Sender: FDA-Public Use
  Company Number: US-ASTRAZENECA-2006UW27213

PATIENT
  Age: 65 Year
  Sex: Female
  Weight: 67.6 kg

DRUGS (8)
  1. CRESTOR [Suspect]
     Indication: BLOOD CHOLESTEROL INCREASED
     Route: 048
     Dates: start: 20060301
  2. FENOFIBRIC ACID (TRILIPIX) [Suspect]
     Route: 065
     Dates: start: 20101201, end: 20110309
  3. BIOTIN [Suspect]
  4. TOPROL-XL [Concomitant]
     Indication: HYPERTENSION
     Route: 048
  5. FISH OIL [Concomitant]
  6. PROTEIN PILLS [Concomitant]
  7. FOLIC ACID [Concomitant]
  8. MULTI-VITAMINS [Concomitant]

REACTIONS (6)
  - BREAST TENDERNESS [None]
  - MYALGIA [None]
  - HEADACHE [None]
  - NAUSEA [None]
  - DYSPEPSIA [None]
  - CHEST PAIN [None]
